FAERS Safety Report 9894676 (Version 1)
Quarter: 2014Q1

REPORT INFORMATION
  Report Type: Spontaneous
  Country: GB (occurrence: GB)
  Receive Date: 20140213
  Receipt Date: 20140213
  Transmission Date: 20141002
  Serious: Yes (Hospitalization)
  Sender: FDA-Public Use
  Company Number: GB-ASTRAZENECA-2014SE08180

PATIENT
  Age: 33 Year
  Sex: Female
  Weight: 71.7 kg

DRUGS (5)
  1. MARCAIN [Suspect]
     Route: 051
  2. PIZOTIFEN [Concomitant]
  3. SERTRALINE [Concomitant]
  4. TIBOLONE [Concomitant]
  5. ZOLADEX [Concomitant]

REACTIONS (5)
  - Faecal incontinence [Recovered/Resolved]
  - Headache [Not Recovered/Not Resolved]
  - Hypotension [Not Recovered/Not Resolved]
  - Diplegia [Recovered/Resolved]
  - Urinary retention [Recovered/Resolved]
